FAERS Safety Report 17822189 (Version 1)
Quarter: 2020Q2

REPORT INFORMATION
  Report Type: Report from Study
  Country: None (occurrence: US)
  Receive Date: 20200526
  Receipt Date: 20200526
  Transmission Date: 20200714
  Serious: Yes (Hospitalization)
  Sender: FDA-Public Use
  Company Number: US-ABBVIE-20K-163-3220743-00

PATIENT
  Age: 59 Year
  Sex: Male
  Weight: 72.64 kg

DRUGS (3)
  1. VENCLEXTA [Suspect]
     Active Substance: VENETOCLAX
     Route: 048
     Dates: start: 20200101
  2. VENCLEXTA [Suspect]
     Active Substance: VENETOCLAX
     Indication: B-CELL SMALL LYMPHOCYTIC LYMPHOMA
     Route: 048
     Dates: start: 20191204, end: 201912
  3. VENCLEXTA [Suspect]
     Active Substance: VENETOCLAX
     Route: 048
     Dates: start: 201912, end: 201912

REACTIONS (4)
  - Fall [Recovered/Resolved]
  - Urticaria [Recovered/Resolved]
  - Food intolerance [Unknown]
  - Stress [Recovered/Resolved]

NARRATIVE: CASE EVENT DATE: 201912
